FAERS Safety Report 17272350 (Version 4)
Quarter: 2020Q4

REPORT INFORMATION
  Report Type: Report from Study
  Country: JP (occurrence: JP)
  Receive Date: 20200115
  Receipt Date: 20201217
  Transmission Date: 20210113
  Serious: Yes (Hospitalization, Other)
  Sender: FDA-Public Use
  Company Number: NVSJ2019JP005346

PATIENT
  Age: 9 Year
  Sex: Male
  Weight: 23.3 kg

DRUGS (27)
  1. ILARIS [Suspect]
     Active Substance: CANAKINUMAB
     Dosage: 48 MG
     Route: 058
     Dates: start: 20181114
  2. ILARIS [Suspect]
     Active Substance: CANAKINUMAB
     Dosage: 50 MG
     Route: 058
     Dates: start: 20190314
  3. ILARIS [Suspect]
     Active Substance: CANAKINUMAB
     Dosage: 50 MG
     Route: 058
     Dates: start: 20190510
  4. ILARIS [Suspect]
     Active Substance: CANAKINUMAB
     Dosage: 53 MG
     Route: 058
     Dates: start: 20191216
  5. ILARIS [Suspect]
     Active Substance: CANAKINUMAB
     Dosage: 57 MG
     Route: 058
     Dates: start: 20200521
  6. ILARIS [Suspect]
     Active Substance: CANAKINUMAB
     Dosage: 50 MG
     Route: 058
     Dates: start: 20181213
  7. ILARIS [Suspect]
     Active Substance: CANAKINUMAB
     Dosage: 55 MG
     Route: 058
     Dates: start: 20200806
  8. ILARIS [Suspect]
     Active Substance: CANAKINUMAB
     Dosage: 48 MG
     Route: 058
     Dates: start: 20180920
  9. ILARIS [Suspect]
     Active Substance: CANAKINUMAB
     Dosage: 55 MG
     Route: 058
     Dates: start: 20200625
  10. ILARIS [Suspect]
     Active Substance: CANAKINUMAB
     Dosage: 55 MG
     Route: 058
     Dates: start: 20200917
  11. ILARIS [Suspect]
     Active Substance: CANAKINUMAB
     Dosage: 48 MG
     Route: 058
     Dates: start: 20181018
  12. ILARIS [Suspect]
     Active Substance: CANAKINUMAB
     Dosage: 50 MG
     Route: 058
     Dates: start: 20190110
  13. ILARIS [Suspect]
     Active Substance: CANAKINUMAB
     Dosage: 50 MG
     Route: 058
     Dates: start: 20190208
  14. ILARIS [Suspect]
     Active Substance: CANAKINUMAB
     Dosage: 50 MG
     Route: 058
     Dates: start: 20190705
  15. ILARIS [Suspect]
     Active Substance: CANAKINUMAB
     Dosage: 50 MG
     Route: 058
     Dates: start: 20190411
  16. ILARIS [Suspect]
     Active Substance: CANAKINUMAB
     Dosage: 55 MG
     Route: 058
     Dates: start: 20200416
  17. ILARIS [Suspect]
     Active Substance: CANAKINUMAB
     Indication: TUMOUR NECROSIS FACTOR RECEPTOR-ASSOCIATED PERIODIC SYNDROME
     Dosage: 48 MG
     Route: 058
     Dates: start: 20180823
  18. ILARIS [Suspect]
     Active Substance: CANAKINUMAB
     Dosage: 52 MG
     Route: 058
     Dates: start: 20190802
  19. ILARIS [Suspect]
     Active Substance: CANAKINUMAB
     Dosage: 52 MG
     Route: 058
     Dates: start: 20190905
  20. ILARIS [Suspect]
     Active Substance: CANAKINUMAB
     Dosage: 55 MG
     Route: 058
     Dates: start: 20191108
  21. ILARIS [Suspect]
     Active Substance: CANAKINUMAB
     Dosage: 50 MG
     Route: 058
     Dates: start: 20190607
  22. ILARIS [Suspect]
     Active Substance: CANAKINUMAB
     Dosage: 54 MG
     Route: 058
     Dates: start: 20191011
  23. ILARIS [Suspect]
     Active Substance: CANAKINUMAB
     Dosage: 55 MG
     Route: 058
     Dates: start: 20200106
  24. ILARIS [Suspect]
     Active Substance: CANAKINUMAB
     Dosage: 55 MG
     Route: 058
     Dates: start: 20200206
  25. ILARIS [Suspect]
     Active Substance: CANAKINUMAB
     Dosage: 55 MG
     Route: 058
     Dates: start: 20200312
  26. FAMOTIDINE. [Concomitant]
     Active Substance: FAMOTIDINE
     Indication: PROPHYLAXIS
     Dosage: UNK
     Route: 048
  27. PREDNISOLONE. [Concomitant]
     Active Substance: PREDNISOLONE
     Indication: TUMOUR NECROSIS FACTOR RECEPTOR-ASSOCIATED PERIODIC SYNDROME
     Dosage: UNK
     Route: 048

REACTIONS (6)
  - Bronchitis [Recovered/Resolved]
  - Viral infection [Recovered/Resolved]
  - Neutrophil count decreased [Unknown]
  - White blood cell count decreased [Recovered/Resolved]
  - Pyrexia [Recovering/Resolving]
  - Cough [Recovering/Resolving]

NARRATIVE: CASE EVENT DATE: 20191117
